FAERS Safety Report 17040643 (Version 1)
Quarter: 2019Q4

REPORT INFORMATION
  Report Type: Report from Study
  Country: US (occurrence: US)
  Receive Date: 20191117
  Receipt Date: 20191117
  Transmission Date: 20200122
  Serious: Yes (Other)
  Sender: FDA-Public Use
  Company Number: NVSC2019US032798

PATIENT
  Sex: Female

DRUGS (1)
  1. PIQRAY [Suspect]
     Active Substance: ALPELISIB
     Indication: PRODUCT USED FOR UNKNOWN INDICATION
     Route: 048

REACTIONS (10)
  - Fatigue [Unknown]
  - Decreased appetite [Unknown]
  - Nausea [Recovered/Resolved]
  - Appetite disorder [Unknown]
  - Blood glucose increased [Unknown]
  - Vision blurred [Unknown]
  - Oral pain [Unknown]
  - Nausea [Unknown]
  - Diabetes mellitus inadequate control [Unknown]
  - Weight decreased [Unknown]
